FAERS Safety Report 7407329-3 (Version None)
Quarter: 2011Q2

REPORT INFORMATION
  Report Type: 
  Country: None (occurrence: None)
  Receive Date: 20110411
  Receipt Date: 20110330
  Transmission Date: 20111010
  Serious: Yes (Other)
  Sender: FDA-Public Use
  Company Number: PHHY2011US25043

PATIENT
  Sex: Female

DRUGS (9)
  1. RECLAST [Suspect]
     Route: 042
     Dates: start: 20100401
  2. FOSAMAX [Suspect]
  3. VITAMIN B COMPLEX CAP [Concomitant]
  4. CALCIUM [Concomitant]
  5. BONIVA [Suspect]
  6. ASPIRIN [Concomitant]
     Dosage: 325 MG, UNK
  7. VAGIFEM [Concomitant]
  8. CALCIUM W/VITAMIN D NOS [Concomitant]
  9. VITAMIN D [Concomitant]

REACTIONS (1)
  - RENAL IMPAIRMENT [None]
